FAERS Safety Report 9271426 (Version 1)
Quarter: 2013Q2

REPORT INFORMATION
  Report Type: Spontaneous
  Country: US (occurrence: US)
  Receive Date: 20130506
  Receipt Date: 20130506
  Transmission Date: 20140414
  Serious: No
  Sender: FDA-Public Use
  Company Number: US-PFIZER INC-2013136077

PATIENT
  Age: 53 Year
  Sex: Male

DRUGS (2)
  1. MORPHINE [Suspect]
     Dosage: UNK
  2. CODEINE [Suspect]
     Dosage: UNK

REACTIONS (2)
  - Pruritus [Unknown]
  - Drug hypersensitivity [Unknown]
